FAERS Safety Report 8997976 (Version 8)
Quarter: 2014Q1

REPORT INFORMATION
  Report Type: Report from Study
  Country: US (occurrence: US)
  Receive Date: 20130104
  Receipt Date: 20140329
  Transmission Date: 20141002
  Serious: Yes (Hospitalization)
  Sender: FDA-Public Use
  Company Number: US-ROCHE-1173952

PATIENT
  Age: 69 Year
  Sex: Male
  Weight: 141 kg

DRUGS (27)
  1. DCDT2980S (ANTI-CD22-VC-MMAE) [Suspect]
     Indication: NON-HODGKIN^S LYMPHOMA
     Dosage: LAST DOSE PRIOR TO SAE ON 07/DEC/2012. DOSAGE FORM : 2.4 MG/KG
     Route: 042
     Dates: start: 20121207, end: 20130102
  2. RITUXIMAB [Suspect]
     Indication: NON-HODGKIN^S LYMPHOMA
     Dosage: LAST DOSE PRIOR TO SAE ON 06/DEC/2012. DOSAGE FORM : 3.75 MG/M2
     Route: 042
     Dates: start: 20121206, end: 20130102
  3. LISINOPRIL [Suspect]
     Indication: PRODUCT USED FOR UNKNOWN INDICATION
     Route: 048
     Dates: start: 2000
  4. LANTUS [Concomitant]
     Indication: TYPE 2 DIABETES MELLITUS
     Route: 058
     Dates: start: 2002
  5. NOVOLOG [Concomitant]
     Indication: TYPE 2 DIABETES MELLITUS
     Route: 058
     Dates: start: 2002
  6. WARFARIN [Concomitant]
     Route: 065
     Dates: start: 2000
  7. PROPAFENONE [Concomitant]
     Indication: ATRIAL FIBRILLATION
     Route: 048
     Dates: start: 2001
  8. SIMVASTATIN [Concomitant]
     Indication: DYSLIPIDAEMIA
     Route: 048
     Dates: start: 2007
  9. AVINZA [Concomitant]
     Indication: OSTEOARTHRITIS
     Route: 048
     Dates: start: 2010
  10. LORTAB [Concomitant]
     Indication: OSTEOARTHRITIS
     Dosage: 7.5 MG/500 MG
     Route: 048
     Dates: start: 1990
  11. FINASTERIDE [Concomitant]
     Route: 065
     Dates: start: 2007
  12. ALLOPURINOL [Concomitant]
     Indication: GOUT
     Route: 048
     Dates: start: 2009
  13. DOCUSATE SODIUM [Concomitant]
     Indication: CONSTIPATION
     Route: 048
     Dates: start: 2010
  14. VITAMIN C [Concomitant]
     Route: 048
     Dates: start: 1970
  15. FISH OIL CONCENTRATE [Concomitant]
     Route: 048
     Dates: start: 2000
  16. SODIUM BICARBONATE [Concomitant]
     Indication: RENAL FAILURE CHRONIC
     Route: 048
     Dates: start: 2011
  17. BACTRIM DS [Concomitant]
     Indication: RASH
     Route: 048
     Dates: start: 201201
  18. ALPHA LIPOIC ACID [Concomitant]
     Route: 065
     Dates: start: 20121212
  19. VITAMIN B6 [Concomitant]
     Route: 048
     Dates: start: 20121207
  20. WARFARIN [Concomitant]
     Indication: ATRIAL FIBRILLATION
     Route: 048
     Dates: start: 2000
  21. FINASTERIDE [Concomitant]
     Indication: BENIGN PROSTATIC HYPERPLASIA
     Route: 048
     Dates: start: 2007
  22. ALPHA LIPOIC ACID [Concomitant]
     Indication: NEUROPATHY PERIPHERAL
     Route: 048
     Dates: start: 20121207
  23. FRESH FROZEN PLASMA [Concomitant]
     Indication: COAGULOPATHY
     Dosage: 2 UNIT
     Route: 042
     Dates: start: 20121221, end: 20121221
  24. INSULIN [Concomitant]
     Indication: HYPERGLYCAEMIA
     Dosage: 10 UNIT
     Route: 058
     Dates: start: 20121220, end: 20121228
  25. IBUPROFEN [Concomitant]
     Indication: PAIN
     Route: 048
     Dates: start: 20121207
  26. MORPHINE SULFATE [Concomitant]
     Route: 065
  27. ACETAMINOPHEN [Concomitant]
     Indication: RENAL FAILURE CHRONIC
     Route: 048

REACTIONS (2)
  - Renal failure acute [Recovering/Resolving]
  - Coagulopathy [Recovered/Resolved]
